FAERS Safety Report 24783375 (Version 1)
Quarter: 2024Q4

REPORT INFORMATION
  Report Type: Spontaneous
  Country: US (occurrence: US)
  Receive Date: 20241227
  Receipt Date: 20241227
  Transmission Date: 20250115
  Serious: Yes (Other)
  Sender: INCYTE
  Company Number: US-EVENT-000991

PATIENT

DRUGS (1)
  1. OPZELURA [Suspect]
     Active Substance: RUXOLITINIB PHOSPHATE
     Indication: Dermatitis atopic
     Dosage: 1.5 PERCENT, BID APPLIED THINLY TO THE AFFECTED AREA(S) TWICE DAILY AS DIRECTED
     Route: 065
     Dates: start: 202409

REACTIONS (1)
  - Arthropathy [Unknown]
